FAERS Safety Report 5423795-7 (Version None)
Quarter: 2007Q3

REPORT INFORMATION
  Report Type: 
  Country: None (occurrence: None)
  Receive Date: 20070823
  Receipt Date: 20070820
  Transmission Date: 20080115
  Serious: Yes (Other)
  Sender: FDA-Public Use
  Company Number: HQWYE748522AUG07

PATIENT
  Sex: Male

DRUGS (3)
  1. PREMARIN [Suspect]
     Indication: PROSTATE CANCER
     Route: 048
  2. PREMARIN [Suspect]
     Route: 048
  3. WARFARIN SODIUM [Concomitant]
     Indication: PROPHYLAXIS
     Route: 048

REACTIONS (1)
  - COAGULOPATHY [None]
